FAERS Safety Report 9957434 (Version 1)
Quarter: 2014Q1

REPORT INFORMATION
  Report Type: Report from Study
  Country: US (occurrence: US)
  Receive Date: 20140304
  Receipt Date: 20140304
  Transmission Date: 20141002
  Serious: No
  Sender: FDA-Public Use
  Company Number: US-ABBVIE-13P-163-1094458-00

PATIENT
  Age: 57 Year
  Sex: Female

DRUGS (16)
  1. HUMIRA [Suspect]
     Indication: PSORIATIC ARTHROPATHY
     Dates: start: 201301
  2. COLCRYS [Concomitant]
     Indication: GOUT
  3. ALLOPURINOL [Concomitant]
     Indication: GOUT
  4. NORTRIPTYLINE [Concomitant]
     Indication: PRODUCT USED FOR UNKNOWN INDICATION
  5. RANITIDINE [Concomitant]
     Indication: PRODUCT USED FOR UNKNOWN INDICATION
     Dosage: UP TO TID
  6. ASPIRIN [Concomitant]
     Indication: CARDIAC DISORDER
  7. METOPROLOL TARTRATE [Concomitant]
     Indication: CARDIAC DISORDER
  8. LISINOPRIL [Concomitant]
     Indication: CARDIAC DISORDER
  9. ATORVASTATIN CALCIUM [Concomitant]
     Indication: CARDIAC DISORDER
  10. FUROSEMIDE [Concomitant]
     Indication: CARDIAC DISORDER
  11. TRAMADOL [Concomitant]
     Indication: PAIN
     Dosage: PRN MAYBE 1-2 TIMES PER DAY
  12. TYLENOL EXTRA STRENGTH [Concomitant]
     Indication: PRODUCT USED FOR UNKNOWN INDICATION
     Dosage: MAYBE 1-2 TIMES PER DAY
  13. SPIRIVA [Concomitant]
     Indication: PRODUCT USED FOR UNKNOWN INDICATION
  14. LEVOXYL [Concomitant]
     Indication: HYPOTHYROIDISM
  15. BUDEPRION [Concomitant]
     Indication: EX-TOBACCO USER
  16. LORAZEPAM [Concomitant]
     Indication: PRODUCT USED FOR UNKNOWN INDICATION
     Dosage: SHE VERY RARELY TAKES THIS

REACTIONS (2)
  - Oedema peripheral [Not Recovered/Not Resolved]
  - Dyspnoea [Not Recovered/Not Resolved]
